FAERS Safety Report 11241277 (Version 1)
Quarter: 2015Q3

REPORT INFORMATION
  Report Type: Spontaneous
  Country: IT (occurrence: IT)
  Receive Date: 20150706
  Receipt Date: 20150706
  Transmission Date: 20151125
  Serious: Yes (Hospitalization)
  Sender: FDA-Public Use
  Company Number: IT-TEVA-575535ACC

PATIENT
  Age: 70 Year
  Sex: Female
  Weight: 67 kg

DRUGS (1)
  1. CARBOLITHIUM - 150 MG CAPSULE RIGIDE - TEVA ITALIA S.R.L . [Suspect]
     Active Substance: LITHIUM CARBONATE
     Indication: PRODUCT USED FOR UNKNOWN INDICATION
     Dosage: 1 DOSAGE FORMS DAILY; 1 DF DAILY
     Route: 048
     Dates: start: 20150101, end: 20150124

REACTIONS (2)
  - Muscle contractions involuntary [Unknown]
  - Antipsychotic drug level increased [None]

NARRATIVE: CASE EVENT DATE: 20150124
